FAERS Safety Report 22030632 (Version 1)
Quarter: 2023Q1

REPORT INFORMATION
  Report Type: Spontaneous
  Country: US (occurrence: US)
  Receive Date: 20230223
  Receipt Date: 20230223
  Transmission Date: 20230418
  Serious: No
  Sender: FDA-Public Use
  Company Number: US-MYLANLABS-2023M1014296

PATIENT
  Age: 34 Year
  Sex: Female

DRUGS (2)
  1. SEMGLEE (INSULIN GLARGINE-YFGN) [Suspect]
     Active Substance: INSULIN GLARGINE-YFGN
     Indication: Type 1 diabetes mellitus
     Dosage: 30 INTERNATIONAL UNIT, QD (15 UNITS IN THE MORNING AND 15 UNITS AT NIGHT)
     Route: 058
  2. INSULIN ASPART [Concomitant]
     Active Substance: INSULIN ASPART
     Indication: Type 1 diabetes mellitus
     Dosage: UNK
     Route: 065

REACTIONS (4)
  - Injection site atrophy [Unknown]
  - Inappropriate schedule of product administration [Unknown]
  - Device breakage [Unknown]
  - Product leakage [Unknown]

NARRATIVE: CASE EVENT DATE: 20230205
